FAERS Safety Report 22041535 (Version 1)
Quarter: 2023Q1

REPORT INFORMATION
  Report Type: Spontaneous
  Country: US (occurrence: None)
  Receive Date: 20230226
  Receipt Date: 20230226
  Transmission Date: 20230418
  Serious: Yes (Hospitalization)
  Sender: FDA-Public Use
  Company Number: None

PATIENT
  Sex: Male
  Weight: 86.64 kg

DRUGS (13)
  1. ABIRATERONE ACETATE [Suspect]
     Active Substance: ABIRATERONE ACETATE
     Indication: Prostate cancer
     Dosage: FREQUENCY : DAILY;?
     Route: 048
     Dates: start: 20220904
  2. APPLE CIDER VINEGAR [Concomitant]
  3. ATORVASTATIN [Concomitant]
  4. CARVEDILOL [Concomitant]
  5. COENZYME Q-10 [Concomitant]
  6. DITIAZEM [Concomitant]
  7. ELIGARD [Concomitant]
     Active Substance: LEUPROLIDE ACETATE
  8. FLOMAX [Concomitant]
  9. MULTIVITAMIN [Concomitant]
  10. PREDNISONE [Concomitant]
  11. VITAMIN B COMPLEX COMBINATIONS [Concomitant]
  12. VITAMIN D3 [Concomitant]
  13. VITAMIN E [Concomitant]

REACTIONS (1)
  - Hip fracture [None]
